FAERS Safety Report 7124768-9 (Version None)
Quarter: 2010Q4

REPORT INFORMATION
  Report Type: 
  Country: None (occurrence: None)
  Receive Date: 20101128
  Receipt Date: 20101128
  Transmission Date: 20110411
  Serious: Yes (Other)
  Sender: FDA-Public Use
  Company Number: None

PATIENT
  Sex: Female
  Weight: 85.7298 kg

DRUGS (1)
  1. DIOVAN [Suspect]
     Indication: HYPERTENSION
     Dosage: ONE DAILY PO
     Route: 048

REACTIONS (10)
  - APHAGIA [None]
  - BLOOD GLUCOSE ABNORMAL [None]
  - COUGH [None]
  - DIARRHOEA [None]
  - DRUG INEFFECTIVE [None]
  - HYPOAESTHESIA [None]
  - MUSCLE ATROPHY [None]
  - STRESS [None]
  - TINNITUS [None]
  - WEIGHT INCREASED [None]
